FAERS Safety Report 9278874 (Version 3)
Quarter: 2013Q2

REPORT INFORMATION
  Report Type: Spontaneous
  Country: BR (occurrence: None)
  Receive Date: 20130501
  Receipt Date: 20130607
  Transmission Date: 20140414
  Serious: Yes (Hospitalization)
  Sender: FDA-Public Use
  Company Number: AUR-APL-2013-03481

PATIENT
  Age: 40 Year
  Sex: Female
  Weight: 67 kg

DRUGS (8)
  1. ATENOLOL [Suspect]
     Indication: HYPERTENSION
     Dosage: 1/2 TABLET DAILY, ORAL
     Route: 048
     Dates: start: 2010, end: 201301
  2. RANITIDINE [Suspect]
     Indication: DYSPEPSIA
     Dates: start: 1993, end: 2013
  3. OMEPRAZOLE [Suspect]
     Indication: DYSPEPSIA
     Dosage: AS REQUIRED
     Route: 048
     Dates: start: 1993
  4. SELOZOK [Suspect]
     Indication: TACHYCARDIA
     Route: 048
     Dates: start: 20130418
  5. ALLOPURINOL [Concomitant]
  6. HYDREA (HYDROXYCARBAMIDE) [Concomitant]
  7. ERGOCALCIFEROL [Concomitant]
  8. ALENDRONATE SODIUM [Concomitant]

REACTIONS (10)
  - Weight increased [None]
  - Insomnia [None]
  - Alopecia [None]
  - Fatigue [None]
  - Heart rate decreased [None]
  - Haemoglobin decreased [None]
  - Feeling abnormal [None]
  - Gastric disorder [None]
  - Condition aggravated [None]
  - Off label use [None]
